FAERS Safety Report 14077875 (Version 4)
Quarter: 2017Q4

REPORT INFORMATION
  Report Type: Report from Study
  Country: CO (occurrence: CO)
  Receive Date: 20171012
  Receipt Date: 20171108
  Transmission Date: 20180321
  Serious: Yes (Hospitalization, Other)
  Sender: FDA-Public Use
  Company Number: CO-TAKEDA-2017MPI008922

PATIENT
  Age: 60 Year
  Sex: Male
  Weight: 60 kg

DRUGS (2)
  1. DARZALEX [Suspect]
     Active Substance: DARATUMUMAB
     Indication: PLASMA CELL MYELOMA
     Dosage: 992 MG, 1/WEEK
     Route: 042
     Dates: start: 20170929
  2. VELCADE [Suspect]
     Active Substance: BORTEZOMIB
     Indication: PLASMA CELL MYELOMA
     Dosage: UNK
     Route: 065

REACTIONS (11)
  - Choking sensation [Recovered/Resolved]
  - Cough [Recovered/Resolved]
  - Vomiting [Recovered/Resolved]
  - Pyrexia [Recovering/Resolving]
  - Decreased appetite [Unknown]
  - Hypocalcaemia [Not Recovered/Not Resolved]
  - Haemoglobin decreased [Unknown]
  - Thrombocytopenia [Recovering/Resolving]
  - Wrong technique in product usage process [Unknown]
  - Infusion related reaction [Recovered/Resolved]
  - Pneumonia [Not Recovered/Not Resolved]

NARRATIVE: CASE EVENT DATE: 201709
